FAERS Safety Report 13069069 (Version 4)
Quarter: 2017Q4

REPORT INFORMATION
  Report Type: Spontaneous
  Country: JP (occurrence: JP)
  Receive Date: 20161228
  Receipt Date: 20171227
  Transmission Date: 20180320
  Serious: Yes (Other)
  Sender: FDA-Public Use
  Company Number: JP-BAYER-2014-080431

PATIENT
  Age: 78 Year
  Sex: Male
  Weight: 52 kg

DRUGS (5)
  1. NEXAVAR [Suspect]
     Active Substance: SORAFENIB
     Indication: HEPATOCELLULAR CARCINOMA
     Dosage: 800 MG, QD
     Route: 048
     Dates: start: 20140122
  2. NEXAVAR [Suspect]
     Active Substance: SORAFENIB
     Indication: HEPATOCELLULAR CARCINOMA
     Dosage: DAILY DOSE 400 MG
     Route: 048
     Dates: start: 201410
  3. NEXAVAR [Suspect]
     Active Substance: SORAFENIB
     Indication: HEPATOCELLULAR CARCINOMA
     Dosage: DAILY DOSE 600 MG
     Route: 048
  4. NEXAVAR [Suspect]
     Active Substance: SORAFENIB
     Indication: HEPATOCELLULAR CARCINOMA
     Dosage: DAILY DOSE 600 MG
     Route: 048
     Dates: start: 201507
  5. BAYASPIRIN 100 MG [Concomitant]
     Active Substance: ASPIRIN
     Route: 048

REACTIONS (15)
  - Diarrhoea [None]
  - Joint swelling [Recovered/Resolved with Sequelae]
  - Tumour thrombosis [Recovering/Resolving]
  - Myalgia [Recovering/Resolving]
  - Palmar-plantar erythrodysaesthesia syndrome [Recovered/Resolved]
  - Oropharyngeal pain [None]
  - Hepatic cancer recurrent [Recovering/Resolving]
  - Arthralgia [Recovering/Resolving]
  - Stomatitis [None]
  - Metastases to lung [Recovering/Resolving]
  - Metastases to adrenals [Recovering/Resolving]
  - Decreased appetite [None]
  - Vomiting [None]
  - Dizziness [None]
  - Dysphonia [None]

NARRATIVE: CASE EVENT DATE: 2014
